FAERS Safety Report 9716193 (Version 1)
Quarter: 2013Q4

REPORT INFORMATION
  Report Type: Spontaneous
  Country: US (occurrence: US)
  Receive Date: 20131127
  Receipt Date: 20131127
  Transmission Date: 20140711
  Serious: Yes (Death)
  Sender: FDA-Public Use
  Company Number: US-ASTELLAS-2013US012395

PATIENT
  Sex: Male

DRUGS (1)
  1. PROGRAF [Suspect]
     Indication: HEPATIC CANCER
     Dosage: 5 MG, BID
     Route: 048
     Dates: start: 20091009, end: 20131003

REACTIONS (2)
  - Off label use [Unknown]
  - Hepatic cancer [Fatal]
